FAERS Safety Report 7027197-1 (Version None)
Quarter: 2010Q4

REPORT INFORMATION
  Report Type: 
  Country: None (occurrence: None)
  Receive Date: 20101004
  Receipt Date: 20100928
  Transmission Date: 20110411
  Serious: Yes (Disabling)
  Sender: FDA-Public Use
  Company Number: US-BAYER-201035148NA

PATIENT
  Age: 50 Year
  Sex: Male

DRUGS (2)
  1. CIPRO [Suspect]
     Indication: PROSTATITIS
     Dosage: TOTAL DAILY DOSE: 1000 MG  UNIT DOSE: 500 MG
     Route: 048
     Dates: end: 20080101
  2. FLOMAX [Concomitant]

REACTIONS (5)
  - ABDOMINAL INJURY [None]
  - ABDOMINAL PAIN [None]
  - CONNECTIVE TISSUE DISORDER [None]
  - GASTROINTESTINAL MALFORMATION [None]
  - TENDON DISORDER [None]
